FAERS Safety Report 5372615-8 (Version None)
Quarter: 2007Q2

REPORT INFORMATION
  Report Type: 
  Country: None (occurrence: None)
  Receive Date: 20070615
  Receipt Date: 20060802
  Transmission Date: 20071010
  Serious: Yes (Other)
  Sender: FDA-Public Use
  Company Number: 200611437US

PATIENT
  Age: 50 Year
  Sex: Male

DRUGS (6)
  1. LANTUS [Suspect]
     Indication: DIABETES MELLITUS
     Dosage: 45 U QPM SC; A FEW YEARS
     Route: 058
     Dates: start: 20010701
  2. LANTUS [Suspect]
     Indication: DIABETES MELLITUS
     Dosage: 45 U QPM SC; A FEW YEARS
     Route: 058
     Dates: start: 20010701
  3. LANTUS [Suspect]
     Indication: DIABETES MELLITUS
     Dosage: 40 U QAM SC
     Route: 058
     Dates: start: 20060206
  4. INSULIN (HUMALOG /00030501/) [Concomitant]
  5. ZETIA [Concomitant]
  6. PRAVASTATIN SODIUM (PRAVACHOL) [Concomitant]

REACTIONS (4)
  - CONVULSION [None]
  - GLYCOSYLATED HAEMOGLOBIN INCREASED [None]
  - HYPOGLYCAEMIA [None]
  - NERVOUS SYSTEM DISORDER [None]
